FAERS Safety Report 7472061-7 (Version None)
Quarter: 2011Q2

REPORT INFORMATION
  Report Type: 
  Country: None (occurrence: None)
  Receive Date: 20110511
  Receipt Date: 20101112
  Transmission Date: 20111010
  Serious: No
  Sender: FDA-Public Use
  Company Number: A0892236A

PATIENT
  Age: 64 Year
  Sex: Female

DRUGS (6)
  1. TYKERB [Suspect]
     Indication: BREAST CANCER
     Dosage: 5TAB PER DAY
     Route: 048
     Dates: start: 20101008
  2. XELODA [Concomitant]
  3. PERCOCET [Concomitant]
  4. BENADRYL [Concomitant]
  5. ADVIL LIQUI-GELS [Concomitant]
  6. COMPAZINE [Concomitant]
     Indication: NAUSEA

REACTIONS (2)
  - DIARRHOEA [None]
  - DRY SKIN [None]
